FAERS Safety Report 8477773-4 (Version None)
Quarter: 2012Q2

REPORT INFORMATION
  Report Type: 
  Country: None (occurrence: None)
  Receive Date: 20120629
  Receipt Date: 20111121
  Transmission Date: 20120825
  Serious: No
  Sender: FDA-Public Use
  Company Number: US-GLAXOSMITHKLINE-A0955908A

PATIENT
  Sex: Female

DRUGS (4)
  1. ALBUTEROL [Suspect]
     Indication: PRODUCT USED FOR UNKNOWN INDICATION
     Route: 055
  2. ROFLUMILAST [Suspect]
     Route: 065
  3. DULERA [Suspect]
     Route: 065
  4. COMBIVENT [Suspect]
     Route: 065

REACTIONS (3)
  - BRONCHITIS [None]
  - PYREXIA [None]
  - DRUG INEFFECTIVE [None]
